FAERS Safety Report 6880016-6 (Version None)
Quarter: 2010Q3

REPORT INFORMATION
  Report Type: 
  Country: None (occurrence: None)
  Receive Date: 20100728
  Receipt Date: 20100722
  Transmission Date: 20110219
  Serious: Yes (Life-Threatening, Hospitalization, Other)
  Sender: FDA-Public Use
  Company Number: PHHY2010CH48015

PATIENT
  Age: 74 Year
  Sex: Female

DRUGS (12)
  1. SIRDALUD [Suspect]
     Indication: PAIN
     Dosage: 2 MG/DAILY
     Dates: start: 20100627
  2. TEGRETOL [Suspect]
     Indication: EPILEPSY
     Dosage: 400 MG, BID
  3. NOVALGIN [Suspect]
     Indication: PAIN
     Dosage: 500 MG 3 X 1 PER DAY
     Dates: start: 20100506, end: 20100627
  4. IRFEN [Concomitant]
     Indication: PAIN
     Dosage: 500 MG, TID
     Route: 048
     Dates: start: 20100627
  5. ACETAMINOPHEN [Concomitant]
     Indication: PAIN
     Route: 048
  6. COMILORIDE [Concomitant]
     Indication: ESSENTIAL HYPERTENSION
     Dosage: 1 DF DAILY
     Route: 048
     Dates: end: 20100627
  7. LASIX [Concomitant]
     Dosage: 30 MG
     Route: 048
     Dates: end: 20100627
  8. LYRICA [Concomitant]
     Indication: PAIN
     Dosage: 75 MG 3 DF/DARY
     Route: 048
     Dates: end: 20100627
  9. OMEPRAZOLE [Concomitant]
     Dosage: 40 MG, TID
     Route: 048
     Dates: end: 20100627
  10. MADOPAR [Concomitant]
     Dosage: 125 MG/DAY
     Route: 048
  11. SIMCORA [Concomitant]
     Indication: HYPERLIPIDAEMIA
     Dosage: 80 MG/DAY
     Route: 048
  12. SIMCORA [Concomitant]
     Indication: ARTERIOSCLEROSIS

REACTIONS (13)
  - AGRANULOCYTOSIS [None]
  - APHTHOUS STOMATITIS [None]
  - CLOSTRIDIUM BACTERAEMIA [None]
  - COGNITIVE DISORDER [None]
  - CONFUSIONAL STATE [None]
  - DENTAL OPERATION [None]
  - DRUG DEPENDENCE [None]
  - GENERAL PHYSICAL HEALTH DETERIORATION [None]
  - HERPES SIMPLEX [None]
  - HYPERCHOLESTEROLAEMIA [None]
  - HYPERTENSION [None]
  - LEUKOPENIA [None]
  - PYREXIA [None]
